FAERS Safety Report 11379981 (Version 1)
Quarter: 2015Q3

REPORT INFORMATION
  Report Type: Spontaneous
  Country: GB (occurrence: GB)
  Receive Date: 20150814
  Receipt Date: 20150814
  Transmission Date: 20151125
  Serious: Yes (Hospitalization, Other)
  Sender: FDA-Public Use
  Company Number: GB-009507513-1508GBR005197

PATIENT
  Sex: Female

DRUGS (1)
  1. NEOCLARITYN [Suspect]
     Active Substance: DESLORATADINE
     Dosage: STRENGTH: 0.5MG/ML, UNK

REACTIONS (2)
  - Nerve injury [Unknown]
  - Cardiac operation [Unknown]
